FAERS Safety Report 9818139 (Version 1)
Quarter: 2013Q4

REPORT INFORMATION
  Report Type: Spontaneous
  Country: US (occurrence: None)
  Receive Date: 20131223
  Receipt Date: 20131223
  Transmission Date: 20140711
  Serious: No
  Sender: FDA-Public Use
  Company Number: 222565

PATIENT
  Sex: Female

DRUGS (3)
  1. PICATO [Suspect]
     Indication: ACTINIC KERATOSIS
     Dosage: 1 IN 1 D DERMAL
     Dates: start: 20130703
  2. NEXIUM (ESOMEPRAZOLE MAGNESIUM) (CAPSULE) [Concomitant]
  3. SYNTHYROID (LEVOTHYROXINE SODIUM) (TABLET) [Concomitant]

REACTIONS (2)
  - Application site vesicles [None]
  - Wrong technique in drug usage process [None]
